FAERS Safety Report 8855147 (Version 2)
Quarter: 2013Q1

REPORT INFORMATION
  Report Type: Spontaneous
  Country: US (occurrence: US)
  Receive Date: 20121023
  Receipt Date: 20130214
  Transmission Date: 20140127
  Serious: Yes (Hospitalization)
  Sender: FDA-Public Use
  Company Number: US-GILEAD-2012-0062920

PATIENT
  Age: 12 Year
  Sex: Female

DRUGS (4)
  1. LETAIRIS [Suspect]
     Indication: EMBOLISM
     Dosage: 5 MG, UNK
     Route: 048
     Dates: start: 20120817
  2. LETAIRIS [Suspect]
     Indication: SICKLE CELL ANAEMIA
  3. FLOLAN [Concomitant]
  4. REVATIO [Concomitant]

REACTIONS (1)
  - Sickle cell anaemia with crisis [Recovered/Resolved]
